FAERS Safety Report 7680902-3 (Version None)
Quarter: 2011Q3

REPORT INFORMATION
  Report Type: 
  Country: None (occurrence: None)
  Receive Date: 20110812
  Receipt Date: 20110803
  Transmission Date: 20111222
  Serious: Yes (Hospitalization)
  Sender: FDA-Public Use
  Company Number: DK-SANOFI-AVENTIS-2011SA044110

PATIENT
  Age: 72 Year
  Sex: Female
  Weight: 104 kg

DRUGS (8)
  1. AMARYL [Concomitant]
     Route: 065
  2. CARVEDILOL [Concomitant]
     Route: 065
     Dates: end: 20110505
  3. WARFARIN SODIUM [Concomitant]
     Route: 065
  4. DRONEDARONE HCL [Suspect]
     Indication: ATRIAL FIBRILLATION
     Route: 048
     Dates: start: 20110331, end: 20110505
  5. FUROSEMIDE [Concomitant]
     Route: 065
  6. LOSARTAN POTASSIUM [Concomitant]
     Route: 065
  7. DIGOXIN [Concomitant]
     Route: 065
     Dates: end: 20110505
  8. SIMVASTATIN [Concomitant]
     Route: 065

REACTIONS (2)
  - VENTRICULAR TACHYCARDIA [None]
  - ERYSIPELAS [None]
